FAERS Safety Report 4321164-4 (Version None)
Quarter: 2004Q1

REPORT INFORMATION
  Report Type: 
  Country: None (occurrence: None)
  Receive Date: 20040312
  Receipt Date: 20040128
  Transmission Date: 20041129
  Serious: Yes (Hospitalization)
  Sender: FDA-Public Use
  Company Number: S04-USA-00400-01

PATIENT
  Age: 18 Year
  Sex: Female

DRUGS (5)
  1. LEXAPRO [Suspect]
     Indication: BIPOLAR I DISORDER
     Dosage: 20 MG QD PO
     Route: 048
     Dates: start: 20030701, end: 20040122
  2. LEXAPRO [Suspect]
     Indication: BIPOLAR I DISORDER
     Dosage: 40 MG QD PO
     Route: 048
     Dates: start: 20040123
  3. ESKALITH [Concomitant]
  4. ABILIFY [Concomitant]
  5. ATIVAN [Concomitant]

REACTIONS (1)
  - DEPRESSION SUICIDAL [None]
